FAERS Safety Report 6079163-0 (Version None)
Quarter: 2009Q1

REPORT INFORMATION
  Report Type: 
  Country: None (occurrence: None)
  Receive Date: 20090216
  Receipt Date: 20090206
  Transmission Date: 20090719
  Serious: Yes (Hospitalization)
  Sender: FDA-Public Use
  Company Number: A0768725A

PATIENT
  Age: 51 Year
  Sex: Female
  Weight: 95.5 kg

DRUGS (7)
  1. AVANDIA [Suspect]
     Dosage: 8MG PER DAY
     Route: 065
     Dates: start: 19990101, end: 20040101
  2. GLUCOPHAGE [Concomitant]
     Dates: start: 19980101, end: 20000101
  3. HUMALOG [Concomitant]
     Dates: start: 19980101, end: 20000101
  4. REGULAR INSULIN [Concomitant]
     Dates: start: 19980101, end: 20000101
  5. LANTUS [Concomitant]
     Dates: start: 19980101, end: 20000101
  6. DIABETA [Concomitant]
     Dates: start: 19980101, end: 20000101
  7. GLUCOTROL [Concomitant]
     Dates: start: 19980101, end: 20000101

REACTIONS (2)
  - CARDIAC FAILURE CONGESTIVE [None]
  - CEREBROVASCULAR ACCIDENT [None]
